FAERS Safety Report 14456415 (Version 1)
Quarter: 2018Q1

REPORT INFORMATION
  Report Type: Other
  Country: IT (occurrence: IT)
  Receive Date: 20180130
  Receipt Date: 20180130
  Transmission Date: 20180509
  Serious: Yes (Other)
  Sender: FDA-Public Use
  Company Number: IT-APOTEX-2018AP005567

PATIENT
  Age: 20 Year
  Sex: Female

DRUGS (2)
  1. TOPAMAX [Suspect]
     Active Substance: TOPIRAMATE
     Indication: PRODUCT USED FOR UNKNOWN INDICATION
     Dosage: UNK
     Route: 048
     Dates: start: 20180104, end: 20180104
  2. TOPIRAMATE. [Suspect]
     Active Substance: TOPIRAMATE
     Indication: PRODUCT USED FOR UNKNOWN INDICATION
     Dosage: UNK
     Route: 048
     Dates: start: 20180104, end: 20180104

REACTIONS (4)
  - Dyskinesia [Unknown]
  - Dystonia [Unknown]
  - Intentional self-injury [Unknown]
  - Intentional product misuse [Unknown]

NARRATIVE: CASE EVENT DATE: 20180104
